FAERS Safety Report 10646846 (Version 2)
Quarter: 2016Q3

REPORT INFORMATION
  Report Type: Spontaneous
  Country: US (occurrence: US)
  Receive Date: 20141211
  Receipt Date: 20160819
  Transmission Date: 20161109
  Serious: No
  Sender: FDA-Public Use
  Company Number: US-009507513-1411USA013028

PATIENT
  Age: 32 Year
  Sex: Male

DRUGS (3)
  1. PROVENTIL [Suspect]
     Active Substance: ALBUTEROL
     Indication: ASTHMA
     Dosage: 1 PUFF AS NEEDED
     Dates: start: 1996
  2. PROVENTIL [Suspect]
     Active Substance: ALBUTEROL
     Indication: RESPIRATORY DISORDER
     Dosage: 1 PUFF AS NEEDED
     Route: 055
     Dates: start: 1996
  3. NAPROXEN. [Concomitant]
     Active Substance: NAPROXEN
     Indication: BACK PAIN
     Dosage: UNK, PRN

REACTIONS (3)
  - Extra dose administered [Unknown]
  - Throat irritation [Recovering/Resolving]
  - Product quality issue [Unknown]

NARRATIVE: CASE EVENT DATE: 201410
